FAERS Safety Report 5987364-2 (Version None)
Quarter: 2008Q4

REPORT INFORMATION
  Report Type: 
  Country: None (occurrence: None)
  Receive Date: 20081209
  Receipt Date: 20081126
  Transmission Date: 20090506
  Serious: Yes (Other)
  Sender: FDA-Public Use
  Company Number: PHHY2008JP29888

PATIENT
  Age: 76 Year
  Sex: Female

DRUGS (1)
  1. GLEEVEC [Suspect]

REACTIONS (5)
  - GASTROINTESTINAL STROMAL TUMOUR [None]
  - MALIGNANT NEOPLASM PROGRESSION [None]
  - MELAENA [None]
  - RESECTION OF RECTUM [None]
  - WHITE BLOOD CELL COUNT DECREASED [None]
